FAERS Safety Report 7007160-7 (Version None)
Quarter: 2010Q2

REPORT INFORMATION
  Report Type: 
  Country: None (occurrence: None)
  Receive Date: 20100225
  Receipt Date: 20091124
  Transmission Date: 20101027
  Serious: No
  Sender: FDA-Public Use
  Company Number: US-JNJFOC-20091108169

PATIENT
  Age: 7 Year
  Sex: Male
  Weight: 49.8957 kg

DRUGS (4)
  1. CHILDREN'S MOTRIN [Suspect]
     Indication: H1N1 INFLUENZA
     Dosage: 350 MG, 1 IN 4 HOUR, ORAL
     Route: 048
     Dates: start: 20091122, end: 20091123
  2. CHILDREN'S MOTRIN [Suspect]
     Indication: PYREXIA
     Dosage: 350 MG, 1 IN 4 HOUR, ORAL
     Route: 048
     Dates: start: 20091122, end: 20091123
  3. CHILDREN'S TYLENOL PLUS MULT-SYMPTOM COLD DYE-FREE GRAPE (ACETAMINOPHE [Concomitant]
  4. TAMIFLU [Concomitant]

REACTIONS (2)
  - EYE SWELLING [None]
  - RASH [None]
